FAERS Safety Report 6661779-1 (Version None)
Quarter: 2010Q1

REPORT INFORMATION
  Report Type: 
  Country: None (occurrence: None)
  Receive Date: 20100331
  Receipt Date: 20090722
  Transmission Date: 20100710
  Serious: No
  Sender: FDA-Public Use
  Company Number: US-BRISTOL-MYERS SQUIBB COMPANY-14670988

PATIENT
  Age: 68 Year
  Sex: Male

DRUGS (1)
  1. ERBITUX [Suspect]
     Indication: TONGUE NEOPLASM MALIGNANT STAGE UNSPECIFIED
     Dosage: ERBITUX: 250MG/M2=400G OVER 60 MINS LOT#08C00392B-EXP DATE-8/11 LOT#08C00282B-EXP DATE-7/11
     Route: 042
     Dates: start: 20090610, end: 20090617

REACTIONS (1)
  - INFUSION SITE EXTRAVASATION [None]
